FAERS Safety Report 14170052 (Version 1)
Quarter: 2017Q4

REPORT INFORMATION
  Report Type: Spontaneous
  Country: CZ (occurrence: CZ)
  Receive Date: 20171108
  Receipt Date: 20171108
  Transmission Date: 20180321
  Serious: Yes (Death, Hospitalization, Other)
  Sender: FDA-Public Use
  Company Number: PHHY2017CZ153228

PATIENT
  Sex: Male

DRUGS (5)
  1. NADROPARIN [Concomitant]
     Active Substance: NADROPARIN
     Indication: PRODUCT USED FOR UNKNOWN INDICATION
     Route: 065
  2. AMLODIPINE [Concomitant]
     Active Substance: AMLODIPINE BESYLATE
     Indication: PRODUCT USED FOR UNKNOWN INDICATION
     Route: 065
  3. AMOXICILLIN + CLAVULANATE POTASSIUM [Suspect]
     Active Substance: AMOXICILLIN\CLAVULANATE POTASSIUM
     Indication: PNEUMONIA
     Route: 065
  4. OMEPRAZOL [Concomitant]
     Active Substance: OMEPRAZOLE
     Indication: PRODUCT USED FOR UNKNOWN INDICATION
     Route: 065
  5. AMOXICILLIN + CLAVULANATE POTASSIUM [Suspect]
     Active Substance: AMOXICILLIN\CLAVULANATE POTASSIUM
     Indication: NOSOCOMIAL INFECTION

REACTIONS (10)
  - Pneumonia pseudomonal [Unknown]
  - Candida infection [Unknown]
  - Klebsiella infection [Unknown]
  - Escherichia infection [Unknown]
  - Chorioretinitis [Unknown]
  - Bacterial infection [Unknown]
  - Sepsis [Fatal]
  - Dermatitis allergic [Unknown]
  - Morganella infection [Unknown]
  - Toxic epidermal necrolysis [Unknown]
